FAERS Safety Report 19627505 (Version 1)
Quarter: 2021Q3

REPORT INFORMATION
  Report Type: Spontaneous
  Country: GB (occurrence: GB)
  Receive Date: 20210728
  Receipt Date: 20210728
  Transmission Date: 20211014
  Serious: Yes (Other)
  Sender: FDA-Public Use
  Company Number: GB-MYLANLABS-2021M1046043

PATIENT
  Age: 68 Year
  Sex: Female
  Weight: 63 kg

DRUGS (11)
  1. AMLODIPINE [Suspect]
     Active Substance: AMLODIPINE BESYLATE
     Indication: PRODUCT USED FOR UNKNOWN INDICATION
     Dosage: 5 MILLIGRAM, QD
     Dates: start: 20210430
  2. LAMOTRIGINE. [Concomitant]
     Active Substance: LAMOTRIGINE
     Dosage: 1 DOSAGE FORM, QD
     Dates: start: 20181127
  3. SENNA                              /00142201/ [Concomitant]
     Active Substance: SENNA LEAF
     Dosage: TAKE 1 OR 2 AT NIGHT WHEN NEEDED.
     Dates: start: 20210520
  4. BENDROFLUMETHIAZIDE [Concomitant]
     Active Substance: BENDROFLUMETHIAZIDE
     Dosage: 1 DOSAGE FORM, AM
     Dates: start: 20210716
  5. MELOXICAM. [Concomitant]
     Active Substance: MELOXICAM
     Dosage: 1 DOSAGE FORM, QD
     Dates: start: 20181127
  6. CODEINE PHOSPHATE [Concomitant]
     Active Substance: CODEINE PHOSPHATE
     Dosage: 1 DOSAGE FORM, QID, WHEN NEEDED
     Dates: start: 20191030
  7. QUETIAPINE. [Concomitant]
     Active Substance: QUETIAPINE
     Dosage: AT NIGHT
     Dates: start: 20190618
  8. ACCRETE D3 [Concomitant]
     Active Substance: CALCIUM CARBONATE\CHOLECALCIFEROL
     Dosage: 1 DOSAGE FORM, BID
     Dates: start: 20200221
  9. LAXIDO [Concomitant]
     Active Substance: POLYETHYLENE GLYCOL 3350\POTASSIUM CHLORIDE\SODIUM BICARBONATE\SODIUM CHLORIDE
     Dosage: ONE TO BE TAKEN ONCE OR TWICE DAILY DISSOLVED I...
     Dates: start: 20201103, end: 20210526
  10. OMEPRAZOLE. [Concomitant]
     Active Substance: OMEPRAZOLE
     Dosage: 1 DOSAGE FORM, QD
     Dates: start: 20181127
  11. EPILIM [Concomitant]
     Active Substance: VALPROATE SODIUM
     Dosage: IN MORNING AND AT NIGHT.
     Dates: start: 20181127

REACTIONS (3)
  - Diplopia [Unknown]
  - Hallucination [Unknown]
  - Balance disorder [Unknown]
